FAERS Safety Report 4303116-3 (Version None)
Quarter: 2004Q1

REPORT INFORMATION
  Report Type: 
  Country: None (occurrence: None)
  Receive Date: 20040224
  Receipt Date: 20040203
  Transmission Date: 20041129
  Serious: Yes (Hospitalization)
  Sender: FDA-Public Use
  Company Number: DE-ROCHE-357988

PATIENT
  Age: 36 Year
  Sex: Male
  Weight: 68.5 kg

DRUGS (22)
  1. DACLIZUMAB [Suspect]
     Route: 042
     Dates: start: 20031202, end: 20031202
  2. DACLIZUMAB [Suspect]
     Route: 042
     Dates: start: 20031215, end: 20031215
  3. DACLIZUMAB [Suspect]
     Route: 042
     Dates: start: 20031229, end: 20031229
  4. MYCOPHENOLATE MOFETIL [Suspect]
     Route: 048
     Dates: start: 20031202, end: 20031223
  5. MYCOPHENOLATE MOFETIL [Suspect]
     Route: 048
     Dates: start: 20031224, end: 20040114
  6. MYCOPHENOLATE MOFETIL [Suspect]
     Route: 048
     Dates: start: 20040130
  7. TACROLIMUS [Suspect]
     Route: 048
     Dates: start: 20031230, end: 20040114
  8. TACROLIMUS [Suspect]
     Route: 048
     Dates: start: 20031225, end: 20031229
  9. TACROLIMUS [Suspect]
     Route: 048
     Dates: start: 20040115, end: 20040115
  10. TACROLIMUS [Suspect]
     Route: 048
     Dates: start: 20030117, end: 20030117
  11. TACROLIMUS [Suspect]
     Route: 048
     Dates: start: 20040118, end: 20040120
  12. TACROLIMUS [Suspect]
     Route: 048
     Dates: start: 20040121, end: 20040125
  13. TACROLIMUS [Suspect]
     Route: 048
     Dates: start: 20040126
  14. PREDNISOLONE [Suspect]
     Route: 048
     Dates: start: 20031202, end: 20031202
  15. PREDNISOLONE [Suspect]
     Route: 048
     Dates: start: 20031203
  16. PREDNISOLONE [Suspect]
     Route: 048
     Dates: start: 20031220
  17. SIROLIMUS [Suspect]
     Route: 048
     Dates: start: 20031202, end: 20031204
  18. SIROLIMUS [Suspect]
     Route: 048
     Dates: start: 20031205, end: 20031212
  19. SIROLIMUS [Suspect]
     Route: 048
     Dates: start: 20031213, end: 20031223
  20. CONCOR [Concomitant]
     Route: 048
     Dates: start: 20031215
  21. FELODIPINE [Concomitant]
     Route: 048
     Dates: start: 20031205
  22. PANTOZOL [Concomitant]
     Route: 048
     Dates: start: 20031205

REACTIONS (4)
  - HYPERCALCAEMIA [None]
  - PSEUDOMONAS INFECTION [None]
  - RENAL TUBULAR DISORDER [None]
  - URINARY TRACT INFECTION [None]
